FAERS Safety Report 14674170 (Version 1)
Quarter: 2018Q1

REPORT INFORMATION
  Report Type: Spontaneous
  Country: US (occurrence: US)
  Receive Date: 20180322
  Receipt Date: 20180322
  Transmission Date: 20180509
  Serious: No
  Sender: FDA-Public Use
  Company Number: None

PATIENT
  Age: 58 Year
  Sex: Female
  Weight: 74.25 kg

DRUGS (2)
  1. ATORVASTATIN [Concomitant]
     Active Substance: ATORVASTATIN
  2. SULFAMETHOXAZOLE [Suspect]
     Active Substance: SULFAMETHOXAZOLE
     Indication: URINARY TRACT INFECTION
     Dates: start: 20180319, end: 20180319

REACTIONS (8)
  - Diarrhoea [None]
  - Hypophagia [None]
  - Drug hypersensitivity [None]
  - Headache [None]
  - Hypersomnia [None]
  - Pain [None]
  - Product quality issue [None]
  - Vomiting [None]

NARRATIVE: CASE EVENT DATE: 20180319
